FAERS Safety Report 6708593-6 (Version None)
Quarter: 2010Q2

REPORT INFORMATION
  Report Type: 
  Country: None (occurrence: None)
  Receive Date: 20100503
  Receipt Date: 20100429
  Transmission Date: 20101027
  Serious: Yes (Hospitalization)
  Sender: FDA-Public Use
  Company Number: IT-ABBOTT-10P-083-0641661-00

PATIENT
  Sex: Female

DRUGS (3)
  1. TIARTAN [Suspect]
     Indication: HYPERTENSION
     Route: 048
     Dates: start: 20090101, end: 20091118
  2. TICLOPIDINA [Suspect]
     Indication: THROMBOSIS PROPHYLAXIS
     Route: 048
     Dates: start: 20090101, end: 20091118
  3. BUSCOPAN [Concomitant]
     Indication: ABDOMINAL PAIN
     Route: 048
     Dates: start: 20091112, end: 20091118

REACTIONS (1)
  - BLOOD POTASSIUM ABNORMAL [None]
